FAERS Safety Report 21629134 (Version 1)
Quarter: 2022Q4

REPORT INFORMATION
  Report Type: Spontaneous
  Country: US (occurrence: None)
  Receive Date: 20221122
  Receipt Date: 20221122
  Transmission Date: 20230113
  Serious: Yes (Disabling)
  Sender: FDA-Public Use
  Company Number: None

PATIENT
  Age: 57 Year
  Sex: Female
  Weight: 94.5 kg

DRUGS (4)
  1. OZEMPIC [Suspect]
     Active Substance: SEMAGLUTIDE
     Indication: Diabetes mellitus
     Dosage: OTHER FREQUENCY : WEEKLY;?
     Route: 058
  2. TOUJEO [Concomitant]
     Active Substance: INSULIN GLARGINE
  3. Farziga [Concomitant]
  4. Flaconazole [Concomitant]

REACTIONS (4)
  - Inflammation [None]
  - Blood pressure increased [None]
  - Liver injury [None]
  - Retinopathy [None]

NARRATIVE: CASE EVENT DATE: 20210901
